FAERS Safety Report 19732517 (Version 3)
Quarter: 2021Q3

REPORT INFORMATION
  Report Type: Other
  Country: US (occurrence: US)
  Receive Date: 20210822
  Receipt Date: 20210906
  Transmission Date: 20211014
  Serious: Yes (Death, Hospitalization, Other)
  Sender: FDA-Public Use
  Company Number: US-ROCHE-2893214

PATIENT
  Age: 69 Year
  Sex: Male

DRUGS (2)
  1. ESBRIET [Suspect]
     Active Substance: PIRFENIDONE
     Indication: IDIOPATHIC PULMONARY FIBROSIS
     Dosage: DOT: 03/SEP/2021.
     Route: 048
  2. OXYGEN. [Concomitant]
     Active Substance: OXYGEN

REACTIONS (5)
  - Chronic obstructive pulmonary disease [Unknown]
  - Fall [Unknown]
  - Oxygen saturation decreased [Unknown]
  - Death [Fatal]
  - Coronary artery disease [Unknown]

NARRATIVE: CASE EVENT DATE: 20210814
